FAERS Safety Report 17501098 (Version 5)
Quarter: 2020Q2

REPORT INFORMATION
  Report Type: Spontaneous
  Country: US (occurrence: US)
  Receive Date: 20200305
  Receipt Date: 20200501
  Transmission Date: 20200713
  Serious: No
  Sender: FDA-Public Use
  Company Number: US-GLAXOSMITHKLINE-US2020AMR036762

PATIENT
  Age: 99 Year
  Sex: Female

DRUGS (2)
  1. ZEJULA [Suspect]
     Active Substance: NIRAPARIB
     Indication: OVARIAN CANCER
     Dosage: 300 MG, QD
     Dates: start: 20200217, end: 20200226
  2. ZEJULA [Suspect]
     Active Substance: NIRAPARIB
     Dosage: 1 DF, 100 MG
     Dates: end: 20200421

REACTIONS (13)
  - Insomnia [Recovering/Resolving]
  - Emotional distress [Unknown]
  - Agitation [Not Recovered/Not Resolved]
  - Adverse drug reaction [Unknown]
  - Anxiety [Unknown]
  - Tremor [Unknown]
  - Confusional state [Not Recovered/Not Resolved]
  - Weight decreased [Not Recovered/Not Resolved]
  - Blood pressure increased [Not Recovered/Not Resolved]
  - Dizziness [Not Recovered/Not Resolved]
  - Nervousness [Unknown]
  - Asthenia [Not Recovered/Not Resolved]
  - Taste disorder [Unknown]

NARRATIVE: CASE EVENT DATE: 202002
